FAERS Safety Report 25570150 (Version 1)
Quarter: 2025Q3

REPORT INFORMATION
  Report Type: Spontaneous
  Country: GB (occurrence: GB)
  Receive Date: 20250717
  Receipt Date: 20250717
  Transmission Date: 20251021
  Serious: Yes (Other)
  Sender: TEVA
  Company Number: GB-MHRA-TPP20441927C10739351YC1751969397657

PATIENT
  Age: 44 Year
  Sex: Female
  Weight: 96 kg

DRUGS (3)
  1. VENLAFAXINE [Suspect]
     Active Substance: VENLAFAXINE HYDROCHLORIDE
     Indication: Ill-defined disorder
     Dosage: 37.5 MG DAILY
     Route: 065
     Dates: start: 20250624
  2. HUXD3 [Concomitant]
     Indication: Ill-defined disorder
     Dosage: TAKE TWO CAPSULES ONCE WEEKLY FOR 7 WEEKS
     Dates: start: 20250606
  3. ESTRADIOL [Concomitant]
     Active Substance: ESTRADIOL
     Indication: Ill-defined disorder
     Dates: start: 20250513, end: 20250610

REACTIONS (2)
  - Muscle rigidity [Recovered/Resolved]
  - Confusional state [Recovered/Resolved]
